FAERS Safety Report 14983124 (Version 1)
Quarter: 2018Q2

REPORT INFORMATION
  Report Type: Report from Study
  Country: DE (occurrence: DE)
  Receive Date: 20180607
  Receipt Date: 20180607
  Transmission Date: 20180711
  Serious: Yes (Death, Hospitalization, Other)
  Sender: FDA-Public Use
  Company Number: DE-ACCORD-067767

PATIENT
  Sex: Female
  Weight: 86.6 kg

DRUGS (7)
  1. AVASTIN [Suspect]
     Active Substance: BEVACIZUMAB
     Indication: OVARIAN CANCER
     Dosage: 1300 MG ON 12-SEP-2012
     Route: 042
     Dates: start: 201208, end: 201212
  2. CISPLATIN. [Suspect]
     Active Substance: CISPLATIN
     Indication: OVARIAN CANCER
     Dosage: 3 CYCLES
     Dates: start: 201303, end: 201306
  3. GEMZAR [Concomitant]
     Active Substance: GEMCITABINE HYDROCHLORIDE
     Indication: OVARIAN CANCER
     Dates: start: 20120912, end: 20121002
  4. DOXORUBICIN [Suspect]
     Active Substance: DOXORUBICIN
     Indication: OVARIAN CANCER
     Dosage: 2 CYCLES
     Dates: start: 201303, end: 201306
  5. TOPOTECAN [Suspect]
     Active Substance: TOPOTECAN HYDROCHLORIDE
     Indication: OVARIAN CANCER
     Dates: start: 201309
  6. CAELYX [Suspect]
     Active Substance: DOXORUBICIN HYDROCHLORIDE
     Indication: OVARIAN CANCER
     Dosage: 2 CYCLES
     Dates: start: 201307
  7. CARBOPLATIN. [Concomitant]
     Active Substance: CARBOPLATIN
     Indication: OVARIAN CANCER
     Dosage: 6 CYCLES
     Route: 042
     Dates: start: 20120912, end: 20121002

REACTIONS (6)
  - Ascites [Unknown]
  - Ileus [Fatal]
  - Urinary tract obstruction [Unknown]
  - Respiratory failure [Fatal]
  - Drug intolerance [Recovered/Resolved]
  - Pleural effusion [Fatal]

NARRATIVE: CASE EVENT DATE: 201208
